FAERS Safety Report 7999780 (Version 29)
Quarter: 2015Q2

REPORT INFORMATION
  Report Type: Report from Study
  Country: CA (occurrence: CA)
  Receive Date: 20110621
  Receipt Date: 20150511
  Transmission Date: 20150821
  Serious: Yes (Other)
  Sender: FDA-Public Use
  Company Number: PHHY2010CA86853

PATIENT
  Age: 64 Year
  Sex: Female

DRUGS (9)
  1. SANDOSTATIN LAR DEPOT [Suspect]
     Active Substance: OCTREOTIDE ACETATE
     Dosage: 60 MG, EVERY 4 WEEKS
     Route: 030
  2. SANDOSTATIN LAR DEPOT [Suspect]
     Active Substance: OCTREOTIDE ACETATE
     Dosage: 60 MG, EVERY 4 WEEKS
     Route: 030
  3. FRAGMIN [Concomitant]
     Active Substance: DALTEPARIN SODIUM
     Indication: PRODUCT USED FOR UNKNOWN INDICATION
     Route: 065
  4. SANDOSTATIN LAR DEPOT [Suspect]
     Active Substance: OCTREOTIDE ACETATE
     Dosage: 90 MG, EVERY 4 WEEKS
     Route: 030
  5. SANDOSTATIN [Suspect]
     Active Substance: OCTREOTIDE ACETATE
     Indication: NEUROENDOCRINE TUMOUR
     Dosage: 1 ML, TID
     Route: 058
     Dates: start: 201004
  6. SANDOSTATIN LAR DEPOT [Suspect]
     Active Substance: OCTREOTIDE ACETATE
     Indication: NEUROENDOCRINE TUMOUR
     Dosage: 40 MG, EVERY 4 WEEKS
     Route: 030
     Dates: start: 20101220
  7. SANDOSTATIN LAR DEPOT [Suspect]
     Active Substance: OCTREOTIDE ACETATE
     Dosage: 90 MG, (3 INJECTIONS OF 30 MG) EVERY 4 WEEKS
     Route: 030
  8. SOMATULINE DEPOT [Concomitant]
     Active Substance: LANREOTIDE ACETATE
     Indication: PRODUCT USED FOR UNKNOWN INDICATION
     Dosage: UNK
     Route: 065
  9. SANDOSTATIN [Suspect]
     Active Substance: OCTREOTIDE ACETATE
     Dosage: 1.5 ML, TID
     Route: 058

REACTIONS (45)
  - Abdominal pain [Recovered/Resolved]
  - Blood calcium increased [Unknown]
  - Reflux gastritis [Recovering/Resolving]
  - Flushing [Unknown]
  - Cough [Unknown]
  - Constipation [Unknown]
  - Malaise [Recovering/Resolving]
  - Injection site mass [Unknown]
  - Injection site induration [Unknown]
  - Injection site haematoma [Unknown]
  - Syringe issue [Unknown]
  - Alopecia [Unknown]
  - Vomiting [Recovered/Resolved]
  - Pain [Recovered/Resolved]
  - Chest pain [Recovering/Resolving]
  - Stasis dermatitis [Unknown]
  - Breast pain [Unknown]
  - Fatigue [Unknown]
  - Asthenia [Recovering/Resolving]
  - Underdose [Unknown]
  - Malignant neoplasm progression [Unknown]
  - Blood parathyroid hormone increased [Unknown]
  - Body temperature decreased [Unknown]
  - Injection site erythema [Recovering/Resolving]
  - Skin disorder [Unknown]
  - Metastases to liver [Unknown]
  - Joint swelling [Recovering/Resolving]
  - Peripheral swelling [Recovering/Resolving]
  - Oropharyngeal pain [Not Recovered/Not Resolved]
  - Heart rate increased [Unknown]
  - Erythema [Unknown]
  - Pyrexia [Unknown]
  - Blood pressure increased [Unknown]
  - Induration [Unknown]
  - Injection site pain [Unknown]
  - Nausea [Recovered/Resolved]
  - Skin plaque [Unknown]
  - Needle issue [Unknown]
  - Arthralgia [Unknown]
  - Abdominal discomfort [Recovering/Resolving]
  - Diarrhoea [Unknown]
  - Flatulence [Unknown]
  - Abdominal distension [Recovering/Resolving]
  - Injection site swelling [Recovering/Resolving]
  - Dyspepsia [Recovering/Resolving]

NARRATIVE: CASE EVENT DATE: 20131223
